FAERS Safety Report 9285761 (Version 1)
Quarter: 2013Q2

REPORT INFORMATION
  Report Type: Spontaneous
  Country: US (occurrence: US)
  Receive Date: 20130513
  Receipt Date: 20130513
  Transmission Date: 20140414
  Serious: Yes (Other)
  Sender: FDA-Public Use
  Company Number: US-PFIZER INC-2013143723

PATIENT
  Age: 62 Year
  Sex: Male
  Weight: 96.15 kg

DRUGS (7)
  1. XELJANZ [Suspect]
     Dosage: 5 MG, 2X/DAY
     Route: 048
  2. SALINE NASAL SPRAY [Concomitant]
     Dosage: 0.65 %, UNK
  3. MYCOPHENOLATE MOFETIL [Concomitant]
     Dosage: 500 MG, UNK
  4. INDERAL-LA [Concomitant]
     Dosage: 80 MG, UNK
  5. AMITRIPTYLINE [Concomitant]
     Dosage: 100 MG, UNK
  6. AMBIEN [Concomitant]
     Dosage: 10 MG, UNK
  7. PREDNISONE [Concomitant]
     Dosage: 10 MG, UNK

REACTIONS (3)
  - Ear haemorrhage [Unknown]
  - Cough [Unknown]
  - Sinus disorder [Unknown]
